FAERS Safety Report 10252742 (Version 1)
Quarter: 2014Q2

REPORT INFORMATION
  Report Type: Spontaneous
  Country: US (occurrence: None)
  Receive Date: 20140619
  Receipt Date: 20140619
  Transmission Date: 20141212
  Serious: Yes (Hospitalization)
  Sender: FDA-Public Use
  Company Number: None

PATIENT
  Age: 39 Year
  Sex: Male
  Weight: 99.8 kg

DRUGS (6)
  1. VICTOZA [Suspect]
     Indication: DIABETES MELLITUS
     Route: 058
  2. WELLBUTRIN XL [Concomitant]
  3. TRICOR [Concomitant]
  4. LANTUS [Concomitant]
  5. ZESTRIL [Concomitant]
  6. GLUCOPHAGE [Concomitant]

REACTIONS (1)
  - Pancreatitis acute [None]
